FAERS Safety Report 8609588-8 (Version None)
Quarter: 2012Q3

REPORT INFORMATION
  Report Type: 
  Country: None (occurrence: None)
  Receive Date: 20120821
  Receipt Date: 20120815
  Transmission Date: 20120928
  Serious: No
  Sender: FDA-Public Use
  Company Number: US-PFIZER INC-2012200440

PATIENT
  Age: 54 Year
  Sex: Female

DRUGS (2)
  1. ADVIL LIQUI-GELS [Suspect]
     Dosage: 600 MG, THREE TIMES A DAY
     Route: 048
     Dates: start: 20120801, end: 20120801
  2. ADVIL LIQUI-GELS [Suspect]
     Indication: INFLAMMATION
     Dosage: THREE LIQUIGEL OF 200 MG, THREE TIMES A DAY
     Route: 048
     Dates: start: 20120501, end: 20120801

REACTIONS (9)
  - OVERDOSE [None]
  - OEDEMA [None]
  - SWELLING [None]
  - PAIN [None]
  - HYPERSENSITIVITY [None]
  - FATIGUE [None]
  - CONDITION AGGRAVATED [None]
  - WEIGHT DECREASED [None]
  - HEADACHE [None]
